FAERS Safety Report 4363757-4 (Version None)
Quarter: 2004Q2

REPORT INFORMATION
  Report Type: 
  Country: None (occurrence: None)
  Receive Date: 20040520
  Receipt Date: 20040520
  Transmission Date: 20050107
  Serious: Yes (Other)
  Sender: FDA-Public Use
  Company Number: None

PATIENT
  Sex: Female
  Weight: 47.6277 kg

DRUGS (1)
  1. SINGULAIR [Suspect]
     Indication: RHINITIS ALLERGIC
     Dosage: 10 MG PO HS
     Route: 048
     Dates: start: 20040503, end: 20040510

REACTIONS (3)
  - ABNORMAL DREAMS [None]
  - NIGHTMARE [None]
  - SLEEP DISORDER [None]
